FAERS Safety Report 5796233-2 (Version None)
Quarter: 2008Q3

REPORT INFORMATION
  Report Type: 
  Country: None (occurrence: None)
  Receive Date: 20080701
  Receipt Date: 20080624
  Transmission Date: 20090109
  Serious: Yes (Other)
  Sender: FDA-Public Use
  Company Number: FR-JNJFOC-20080606130

PATIENT
  Age: 34 Year
  Sex: Female
  Weight: 65 kg

DRUGS (8)
  1. REMICADE [Suspect]
     Indication: PSORIASIS
     Route: 042
  2. ENBREL [Suspect]
     Route: 058
  3. ENBREL [Suspect]
     Route: 058
  4. ENBREL [Suspect]
     Route: 058
  5. ENBREL [Suspect]
     Indication: PSORIASIS
     Route: 058
  6. RAPTIVA [Suspect]
     Route: 058
  7. RAPTIVA [Suspect]
     Indication: PSORIASIS
     Route: 058
  8. LEVONORGESTREL AND ETHINYL ESTRADIOL [Concomitant]
     Indication: CONTRACEPTION
     Dosage: 0.15/0.03 FOR MORE THAN 10YEARS
     Route: 048

REACTIONS (1)
  - TUBERCULOSIS [None]
